FAERS Safety Report 13610270 (Version 1)
Quarter: 2017Q2

REPORT INFORMATION
  Report Type: Spontaneous
  Country: BR (occurrence: BR)
  Receive Date: 20170605
  Receipt Date: 20170605
  Transmission Date: 20170830
  Serious: Yes (Death, Hospitalization)
  Sender: FDA-Public Use
  Company Number: BR-ACCORD-052254

PATIENT
  Age: 67 Year
  Sex: Female

DRUGS (2)
  1. MYCOPHENOLIC ACID. [Suspect]
     Active Substance: MYCOPHENOLIC ACID
     Indication: PEMPHIGUS
     Dosage: 3 G/DAY
  2. PREDNISONE. [Suspect]
     Active Substance: PREDNISONE
     Indication: PEMPHIGUS
     Dosage: 60 MG/DAY

REACTIONS (7)
  - Cytomegalovirus gastrointestinal infection [Unknown]
  - Treatment noncompliance [Unknown]
  - Pulmonary embolism [Fatal]
  - Malnutrition [Unknown]
  - Off label use [Unknown]
  - Cardiac arrest [Fatal]
  - Pneumonia [Unknown]
